FAERS Safety Report 24215942 (Version 1)
Quarter: 2024Q3

REPORT INFORMATION
  Report Type: Spontaneous
  Country: US (occurrence: None)
  Receive Date: 20240816
  Receipt Date: 20240816
  Transmission Date: 20241016
  Serious: No
  Sender: OREXO
  Company Number: US-ARIS GLOBAL-ORE202404-000018

PATIENT
  Sex: Female
  Weight: 63.5 kg

DRUGS (1)
  1. ZUBSOLV [Suspect]
     Active Substance: BUPRENORPHINE HYDROCHLORIDE\NALOXONE HYDROCHLORIDE
     Indication: Drug dependence
     Dates: start: 2023

REACTIONS (1)
  - Alopecia [Not Recovered/Not Resolved]
